FAERS Safety Report 6855096-4 (Version None)
Quarter: 2010Q3

REPORT INFORMATION
  Report Type: 
  Country: None (occurrence: None)
  Receive Date: 20100717
  Receipt Date: 20081125
  Transmission Date: 20110219
  Serious: Yes (Hospitalization)
  Sender: FDA-Public Use
  Company Number: US-PFIZER INC-2007108669

PATIENT
  Age: 78 Year
  Sex: Male
  Weight: 63.1 kg

DRUGS (9)
  1. VARENICLINE TARTRATE [Suspect]
     Indication: SMOKING CESSATION THERAPY
     Dosage: 1 MG, 1X/DAY
     Route: 048
     Dates: start: 20070216, end: 20070305
  2. ALLOPURINOL [Concomitant]
     Dosage: 100 UNK, UNK
     Route: 048
  3. RANITIDINE [Concomitant]
     Dosage: UNK
     Route: 048
  4. THEOPHYLLINE-SR [Concomitant]
     Dosage: UNK
     Route: 048
  5. COMBIVENT [Concomitant]
     Dosage: UNK
  6. DESLORATADINE [Concomitant]
     Dosage: 5 MG, AS NEEDED
     Route: 048
  7. DONEPEZIL [Concomitant]
     Dosage: 10 MG, 1X/DAY
     Route: 048
  8. SPIRIVA [Concomitant]
     Dosage: UNK
  9. FLUTICASONE [Concomitant]
     Dosage: UNK PH UNITS, UNK

REACTIONS (1)
  - GASTROINTESTINAL HAEMORRHAGE [None]
